FAERS Safety Report 20124115 (Version 1)
Quarter: 2021Q4

REPORT INFORMATION
  Report Type: Spontaneous
  Country: JP (occurrence: JP)
  Receive Date: 20211129
  Receipt Date: 20211129
  Transmission Date: 20220303
  Serious: Yes (Death, Other)
  Sender: FDA-Public Use
  Company Number: JP-TAKEDA-2021TJP122731

PATIENT
  Age: 4 Decade
  Sex: Female

DRUGS (1)
  1. ALUNBRIG [Suspect]
     Active Substance: BRIGATINIB
     Indication: Neoplasm malignant
     Dosage: UNK
     Route: 048

REACTIONS (2)
  - Neoplasm malignant [Fatal]
  - Condition aggravated [Fatal]
